FAERS Safety Report 7974195-7 (Version None)
Quarter: 2011Q4

REPORT INFORMATION
  Report Type: 
  Country: None (occurrence: None)
  Receive Date: 20111213
  Receipt Date: 20111008
  Transmission Date: 20120403
  Serious: No
  Sender: FDA-Public Use
  Company Number: US-BAYER-2011-099143

PATIENT
  Age: 27 Year
  Sex: Male
  Weight: 108.84 kg

DRUGS (2)
  1. MOTRIN [Suspect]
  2. ALEVE (CAPLET) [Suspect]
     Indication: PAIN
     Route: 048

REACTIONS (4)
  - HYPERHIDROSIS [None]
  - RETCHING [None]
  - FEELING HOT [None]
  - VOMITING [None]
